FAERS Safety Report 10398369 (Version 1)
Quarter: 2014Q1

REPORT INFORMATION
  Report Type: Spontaneous
  Country: US (occurrence: None)
  Receive Date: 20130815
  Receipt Date: 20130815
  Transmission Date: 20141002
  Serious: Yes (Hospitalization, Other)
  Sender: FDA-Public Use
  Company Number: ADR-2012-00814

PATIENT
  Sex: Male

DRUGS (2)
  1. LIORESAL INTRATHECAL (BACLOFEN INJECTION) 2000 MCG/ML [Suspect]
     Indication: MUSCLE SPASTICITY
  2. LIORESAL INTRATHECAL (BACLOFEN INJECTION) 2000 MCG/ML [Suspect]
     Indication: CEREBRAL PALSY

REACTIONS (7)
  - Muscle spasticity [None]
  - Therapeutic response decreased [None]
  - Hyperhidrosis [None]
  - Underdose [None]
  - Muscle tightness [None]
  - Fatigue [None]
  - Unevaluable event [None]
